FAERS Safety Report 7543998-5 (Version None)
Quarter: 2011Q2

REPORT INFORMATION
  Report Type: 
  Country: None (occurrence: None)
  Receive Date: 20110613
  Receipt Date: 20050307
  Transmission Date: 20111010
  Serious: Yes (Other)
  Sender: FDA-Public Use
  Company Number: PHFR2004GB04547

PATIENT
  Sex: Male

DRUGS (2)
  1. CLOZAPINE [Suspect]
     Indication: SCHIZOPHRENIA
     Dosage: 400 MG, PER DAY
     Route: 048
     Dates: start: 20041122, end: 20050303
  2. AMISULPRIDE [Concomitant]
     Indication: SCHIZOPHRENIA
     Dosage: 100 MG, PER DAY
     Route: 048
     Dates: start: 20041123, end: 20050303

REACTIONS (4)
  - PYREXIA [None]
  - HEART RATE INCREASED [None]
  - C-REACTIVE PROTEIN INCREASED [None]
  - INFECTION [None]
